FAERS Safety Report 13564284 (Version 2)
Quarter: 2017Q2

REPORT INFORMATION
  Report Type: Spontaneous
  Country: JP (occurrence: JP)
  Receive Date: 20170519
  Receipt Date: 20170525
  Transmission Date: 20170830
  Serious: Yes (Other)
  Sender: FDA-Public Use
  Company Number: PHJP2017JP016519

PATIENT
  Sex: Male

DRUGS (1)
  1. GLIVEC [Suspect]
     Active Substance: IMATINIB MESYLATE
     Indication: CHRONIC MYELOID LEUKAEMIA
     Dosage: 400 MG, QD
     Route: 048

REACTIONS (5)
  - Cytogenetic analysis abnormal [Unknown]
  - Myelodysplastic syndrome [Unknown]
  - Blast cell proliferation [Unknown]
  - Second primary malignancy [Unknown]
  - Dysplasia [Unknown]

NARRATIVE: CASE EVENT DATE: 20170515
